FAERS Safety Report 25027953 (Version 6)
Quarter: 2025Q1

REPORT INFORMATION
  Report Type: Spontaneous
  Country: US (occurrence: US)
  Receive Date: 20250301
  Receipt Date: 20250317
  Transmission Date: 20250409
  Serious: No
  Sender: SANOFI AVENTIS
  Company Number: US-SA-2025SA059214

PATIENT
  Age: 58 Year
  Sex: Female

DRUGS (1)
  1. DUPIXENT [Suspect]
     Active Substance: DUPILUMAB
     Indication: Asthma
     Dosage: 300 MG, QOW
     Route: 058

REACTIONS (10)
  - Dyspnoea [Not Recovered/Not Resolved]
  - Pyrexia [Unknown]
  - Chest discomfort [Unknown]
  - Chest pain [Unknown]
  - Respiration abnormal [Unknown]
  - Cough [Unknown]
  - Injection site haemorrhage [Unknown]
  - Contusion [Unknown]
  - Vertigo [Recovering/Resolving]
  - Injection site swelling [Unknown]

NARRATIVE: CASE EVENT DATE: 20250221
